FAERS Safety Report 14296679 (Version 1)
Quarter: 2017Q4

REPORT INFORMATION
  Report Type: Spontaneous
  Country: FR (occurrence: FR)
  Receive Date: 20171218
  Receipt Date: 20171218
  Transmission Date: 20180321
  Serious: Yes (Hospitalization)
  Sender: FDA-Public Use
  Company Number: FR-JNJFOC-20171209878

PATIENT
  Age: 84 Year
  Sex: Female

DRUGS (6)
  1. RISPERDAL [Suspect]
     Active Substance: RISPERIDONE
     Indication: WRONG PATIENT RECEIVED MEDICATION
     Dosage: STRENGTH 1MG
     Route: 048
     Dates: start: 20171114, end: 20171114
  2. DIFFU K [Suspect]
     Active Substance: POTASSIUM CHLORIDE
     Indication: WRONG PATIENT RECEIVED MEDICATION
     Route: 048
     Dates: start: 20171114, end: 20171114
  3. ACIDE FOLIQUE [Suspect]
     Active Substance: FOLIC ACID
     Indication: WRONG PATIENT RECEIVED MEDICATION
     Route: 048
     Dates: start: 20171114, end: 20171114
  4. LEVOTHYROX [Suspect]
     Active Substance: LEVOTHYROXINE
     Indication: WRONG PATIENT RECEIVED MEDICATION
     Route: 048
     Dates: start: 20171114, end: 20171114
  5. FEROGRAD [Suspect]
     Active Substance: ASCORBIC ACID\FERROUS SULFATE
     Indication: WRONG PATIENT RECEIVED MEDICATION
     Route: 048
     Dates: start: 20171114, end: 20171114
  6. SERESTA [Suspect]
     Active Substance: OXAZEPAM
     Indication: WRONG PATIENT RECEIVED MEDICATION
     Route: 048
     Dates: start: 20171114, end: 20171114

REACTIONS (7)
  - Loss of consciousness [Recovered/Resolved]
  - Orthostatic hypotension [Recovered/Resolved]
  - Nausea [Recovered/Resolved]
  - Wrong patient received medication [Unknown]
  - Drug administration error [Unknown]
  - Abdominal pain [Recovered/Resolved]
  - Malaise [Recovered/Resolved]

NARRATIVE: CASE EVENT DATE: 20171114
